FAERS Safety Report 12398736 (Version 1)
Quarter: 2016Q2

REPORT INFORMATION
  Report Type: Spontaneous
  Country: FR (occurrence: FR)
  Receive Date: 20160524
  Receipt Date: 20160524
  Transmission Date: 20160815
  Serious: Yes (Hospitalization)
  Sender: FDA-Public Use
  Company Number: FR-TEVA-660425ISR

PATIENT
  Age: 37 Year
  Sex: Male

DRUGS (6)
  1. VENLAFAXINE WYETH LP 75 MG [Suspect]
     Active Substance: VENLAFAXINE HYDROCHLORIDE
     Indication: DEPRESSION
     Dosage: 2 DOSAGE FORMS DAILY;
     Route: 048
     Dates: start: 201505, end: 20160329
  2. ACAMPROSATE BIOGARAN 333 MG [Suspect]
     Active Substance: ACAMPROSATE CALCIUM
     Indication: ALCOHOL DETOXIFICATION
     Dosage: 6 DOSAGE FORMS DAILY; GASTRO-RESISTANT TABLET
     Route: 048
     Dates: end: 20160329
  3. LAMOTRIGINE. [Concomitant]
     Active Substance: LAMOTRIGINE
  4. DIAZEPAM TEVA 10 MG [Suspect]
     Active Substance: DIAZEPAM
     Dosage: 2 DOSAGE FORMS DAILY;
     Route: 048
     Dates: start: 2015, end: 20160329
  5. LORAZEPAM MERCK 2.5 MG [Suspect]
     Active Substance: LORAZEPAM
     Dosage: 3 DOSAGE FORMS DAILY;
     Route: 048
     Dates: start: 2015, end: 20160329
  6. CREON [Concomitant]
     Active Substance: PANCRELIPASE AMYLASE\PANCRELIPASE LIPASE\PANCRELIPASE PROTEASE

REACTIONS (3)
  - Suicide attempt [Recovered/Resolved]
  - Intentional overdose [None]
  - Overdose [Recovered/Resolved]

NARRATIVE: CASE EVENT DATE: 20160329
